FAERS Safety Report 19442471 (Version 1)
Quarter: 2021Q2

REPORT INFORMATION
  Report Type: Spontaneous
  Country: US (occurrence: US)
  Receive Date: 20210619
  Receipt Date: 20210619
  Transmission Date: 20210717
  Serious: Yes (Disabling)
  Sender: FDA-Public Use
  Company Number: None

PATIENT
  Age: 41 Year
  Sex: Female
  Weight: 72 kg

DRUGS (5)
  1. FLORASTOR [Concomitant]
     Active Substance: SACCHAROMYCES CEREVISIAE
  2. LAMICTAL [Concomitant]
     Active Substance: LAMOTRIGINE
  3. CLINDAMYCIN. [Suspect]
     Active Substance: CLINDAMYCIN
     Indication: TONSILLITIS
     Dosage: ?          QUANTITY:1 TABLET(S);?
     Route: 048
     Dates: start: 20210427, end: 20210506
  4. MULTIVITAMIN [Concomitant]
     Active Substance: VITAMINS
  5. ENEW LIFE PROBIOTIC FOR WOMEN [Concomitant]

REACTIONS (1)
  - Clostridium difficile infection [None]

NARRATIVE: CASE EVENT DATE: 20210519
